FAERS Safety Report 14287185 (Version 9)
Quarter: 2020Q3

REPORT INFORMATION
  Report Type: Spontaneous
  Country: GR (occurrence: GR)
  Receive Date: 20171214
  Receipt Date: 20200929
  Transmission Date: 20201102
  Serious: Yes (Other)
  Sender: FDA-Public Use
  Company Number: GR-BAXTER-2017BAX042267

PATIENT
  Age: 62 Year
  Sex: Female

DRUGS (49)
  1. EPIRUBICIN HCL [Suspect]
     Active Substance: EPIRUBICIN HYDROCHLORIDE
     Indication: BREAST CANCER METASTATIC
     Dosage: REGIMEN #1, 1 DF, CYCLIC
     Route: 065
     Dates: start: 2006
  2. VINORELBINE [Suspect]
     Active Substance: VINORELBINE TARTRATE
     Indication: BREAST CANCER METASTATIC
     Dosage: REGIMEN#1, 1 DF, CYCLIC COMBINATION WITH TRASTUZUMAB
     Route: 065
     Dates: start: 2009
  3. FULVESTRANT. [Suspect]
     Active Substance: FULVESTRANT
     Indication: RECURRENT CANCER
     Dosage: REGIMEN#1, 1 DF, CYCLIC, COMBINATION WITH TRASTUZUMAB
     Route: 065
     Dates: start: 2009
  4. TRASTUZUMAB. [Suspect]
     Active Substance: TRASTUZUMAB
     Indication: BREAST CANCER METASTATIC
     Dosage: 1 DF, QD, COMBINATION WITH VINORELBINE
     Route: 065
     Dates: start: 2009
  5. ENDOXAN 1000 MG ? POWDER FOR SOLUTION FOR INJECTION [Suspect]
     Active Substance: CYCLOPHOSPHAMIDE
     Indication: BREAST CANCER METASTATIC
     Dosage: REGIMEN #1, 1 DF, CYCLIC
     Route: 065
     Dates: start: 2006
  6. METHOTREXATE SODIUM. [Suspect]
     Active Substance: METHOTREXATE SODIUM
     Indication: BREAST CANCER METASTATIC
     Dosage: REGIMEN #1, 1 DF, CYCLIC
     Route: 065
     Dates: start: 2006
  7. GEMCITABINE HYDROCHLORIDE. [Suspect]
     Active Substance: GEMCITABINE HYDROCHLORIDE
     Dosage: 1 DF, CYCLIC, COMBINATION WITH TRASTUZUMAB AND CARBOPLATIN
     Route: 065
     Dates: start: 2009
  8. EXEMESTANE. [Suspect]
     Active Substance: EXEMESTANE
     Indication: RECURRENT CANCER
     Dosage: 1 DF, CYCLIC, COMBINATION WITH TRASTZUMAB AND EVEROLIMUS
     Route: 065
     Dates: start: 2009
  9. FULVESTRANT. [Suspect]
     Active Substance: FULVESTRANT
     Indication: METASTATIC MALIGNANT MELANOMA
     Dosage: COMBINATION WITH TRASTUZUMAB
     Route: 030
     Dates: start: 2009
  10. TRASTUZUMAB EMTANSINE [Suspect]
     Active Substance: ADO-TRASTUZUMAB EMTANSINE
     Indication: RECURRENT CANCER
     Dosage: 1 DF, CYCLIC
     Route: 065
     Dates: start: 2009
  11. DOCETAXEL. [Suspect]
     Active Substance: DOCETAXEL
     Indication: BREAST CANCER METASTATIC
     Dosage: REGIMEN#1, 1 DF, CYCLIC
     Route: 065
     Dates: start: 2009
  12. VINORELBINE [Suspect]
     Active Substance: VINORELBINE TARTRATE
     Indication: RECURRENT CANCER
     Dosage: 1 DF, 1 QD
     Route: 065
     Dates: start: 2009
  13. LAPATINIB [Suspect]
     Active Substance: LAPATINIB
     Indication: BREAST CANCER METASTATIC
     Dosage: REGIMEN#1, COMBINATION WITH CAPECITABINE
     Route: 065
     Dates: start: 2009
  14. ERIBULIN [Suspect]
     Active Substance: ERIBULIN
     Indication: BREAST CANCER METASTATIC
     Route: 065
  15. TRASTUZUMAB. [Suspect]
     Active Substance: TRASTUZUMAB
     Dosage: 1 DF, CYCLIC COMBINATION WITH ERIBULIN
     Route: 065
     Dates: start: 2009
  16. TRASTUZUMAB. [Suspect]
     Active Substance: TRASTUZUMAB
     Dosage: 1 DF, CYCLIC COMBINATION WITH EXEMESTANE AND EVEROLIMUS
     Route: 065
     Dates: start: 2009
  17. CAPECITABINE BIOGARAN [Suspect]
     Active Substance: CAPECITABINE
     Indication: BREAST CANCER METASTATIC
     Route: 065
     Dates: start: 2009
  18. FLUOROURACIL. [Suspect]
     Active Substance: FLUOROURACIL
     Indication: BREAST CANCER METASTATIC
     Dosage: REGIMEN#1, 1 DF, CYCLIC
     Route: 065
     Dates: start: 2006
  19. GEMCITABINE HYDROCHLORIDE. [Suspect]
     Active Substance: GEMCITABINE HYDROCHLORIDE
     Indication: BREAST CANCER METASTATIC
     Dosage: COMBINATION WITH TRASTUZUMAB AND CARBOPLATIN
     Route: 065
     Dates: start: 2009
  20. LAPATINIB [Suspect]
     Active Substance: LAPATINIB
     Indication: METASTATIC MALIGNANT MELANOMA
     Dosage: 1 DF, CYCLIC COMBINATION WITH TRASTZUMAB AND EXEMESTANE
     Route: 065
  21. LAPATINIB [Suspect]
     Active Substance: LAPATINIB
     Indication: RECURRENT CANCER
     Dosage: REGIMEN#1 COMBINATION WITH CAPECITABINE
     Route: 065
     Dates: start: 2009
  22. FULVESTRANT. [Suspect]
     Active Substance: FULVESTRANT
     Indication: BREAST CANCER METASTATIC
     Route: 065
  23. EPIRUBICIN HCL [Suspect]
     Active Substance: EPIRUBICIN HYDROCHLORIDE
     Indication: RECURRENT CANCER
  24. DOCETAXEL. [Suspect]
     Active Substance: DOCETAXEL
     Indication: RECURRENT CANCER
     Route: 065
  25. CAPECITABINE. [Suspect]
     Active Substance: CAPECITABINE
     Dosage: 1 DF, CYCLIC COMBINATION WITH TRASTUZUMAB
     Route: 065
     Dates: start: 2009
  26. LIPOSOMAL DOXORUBICIN HCL [Suspect]
     Active Substance: DOXORUBICIN HYDROCHLORIDE
     Indication: BREAST CANCER METASTATIC
     Dosage: REGIMEN#1, 1 DF, QD COMBINATION WITH TRASTUZUMAB
     Route: 065
     Dates: start: 2009
  27. EVEROLIMUS. [Suspect]
     Active Substance: EVEROLIMUS
     Indication: PROPHYLAXIS AGAINST TRANSPLANT REJECTION
     Route: 065
  28. TRASTUZUMAB. [Suspect]
     Active Substance: TRASTUZUMAB
     Indication: RECURRENT CANCER
     Dosage: REGIMEN#1
     Route: 065
     Dates: start: 2009
  29. GEMCITABINE HYDROCHLORIDE. [Suspect]
     Active Substance: GEMCITABINE HYDROCHLORIDE
     Indication: RECURRENT CANCER
     Route: 065
  30. CARBOPLATIN. [Suspect]
     Active Substance: CARBOPLATIN
     Indication: RECURRENT CANCER
     Dosage: 1 DF, CYCLIC, COMBINATION WITH TRASTUZUMAB AND GEMCITABINE
     Route: 065
     Dates: start: 2009
  31. EXEMESTANE. [Suspect]
     Active Substance: EXEMESTANE
     Indication: BREAST CANCER METASTATIC
     Dosage: COMBINATION WITH TRASTZUMAB AND EVEROLIMUS
     Route: 065
     Dates: start: 2009
  32. VINORELBINE [Suspect]
     Active Substance: VINORELBINE TARTRATE
     Route: 065
  33. LIPOSOMAL DOXORUBICIN HCL [Suspect]
     Active Substance: DOXORUBICIN HYDROCHLORIDE
     Indication: RECURRENT CANCER
     Route: 065
  34. ERIBULIN [Suspect]
     Active Substance: ERIBULIN
     Indication: RECURRENT CANCER
     Dosage: REGIMEN#1, 1 DF, CYCLIC COMBINATION WITH TRASTUZUMAB
     Route: 065
     Dates: start: 2009
  35. EVEROLIMUS. [Suspect]
     Active Substance: EVEROLIMUS
     Indication: RECURRENT CANCER
     Dosage: REGIMEN#1, COMBINATION WITH TRASTZUMAB AND EXEMESTANE
     Route: 065
     Dates: start: 2009
  36. TRASTUZUMAB. [Suspect]
     Active Substance: TRASTUZUMAB
     Dosage: 1 DF, CYCLIC COMBINATION WITH LIPOSOMAL DOXORUBICIN HCL
     Route: 065
     Dates: start: 2009
  37. TRASTUZUMAB. [Suspect]
     Active Substance: TRASTUZUMAB
     Dosage: COMBINATION WITH FULVESTRANT
     Route: 065
     Dates: start: 2009
  38. TRASTUZUMAB. [Suspect]
     Active Substance: TRASTUZUMAB
     Dosage: 1 DF, CYCLIC COMBINATION WITH TAMOXIFEN
     Route: 065
     Dates: start: 2009
  39. TAMOXIFEN CITRATE. [Suspect]
     Active Substance: TAMOXIFEN CITRATE
     Indication: BREAST CANCER METASTATIC
     Dosage: REGIMEN#1, 1 DF, CYCLIC COMBINATION WITH TRASTUZUMAB
     Route: 048
     Dates: start: 2009
  40. TAMOXIFEN CITRATE. [Suspect]
     Active Substance: TAMOXIFEN CITRATE
     Indication: RECURRENT CANCER
     Route: 065
  41. CARBOPLATIN. [Suspect]
     Active Substance: CARBOPLATIN
     Indication: BREAST CANCER METASTATIC
     Dosage: COMBINATION WITH TRASTUZUMAB AND GEMCITABINE
     Route: 065
     Dates: start: 2009
  42. CAPECITABINE. [Suspect]
     Active Substance: CAPECITABINE
     Indication: BREAST CANCER METASTATIC
     Dosage: REGIMEN#1, COMBINATION WITH LAPATINIB
     Route: 065
     Dates: start: 2009
  43. EVEROLIMUS. [Suspect]
     Active Substance: EVEROLIMUS
     Indication: BREAST CANCER
     Dosage: 1 DF, CYCLIC COMBINATION WITH TRASTZUMAB AND EXEMESTANE
     Route: 065
     Dates: start: 2009
  44. TRASTUZUMAB. [Suspect]
     Active Substance: TRASTUZUMAB
     Dosage: 1 DF, CYCLIC COMBINATION WITH CAPECITABINE
     Route: 065
     Dates: start: 2009
  45. TRASTUZUMAB EMTANSINE [Suspect]
     Active Substance: ADO-TRASTUZUMAB EMTANSINE
     Indication: BREAST CANCER METASTATIC
     Dosage: REGIMEN#1,
     Route: 065
     Dates: start: 2009
  46. PACLITAXEL. [Suspect]
     Active Substance: PACLITAXEL
     Indication: BREAST CANCER METASTATIC
     Dosage: REGIMEN #1, 1 DF, CYCLIC
     Route: 065
     Dates: start: 2006
  47. CAPECITABINE. [Suspect]
     Active Substance: CAPECITABINE
     Indication: RECURRENT CANCER
     Dosage: COMBINATION WITH TRASTUZUMAB
     Route: 065
     Dates: start: 2009
  48. TRASTUZUMAB. [Suspect]
     Active Substance: TRASTUZUMAB
     Dosage: 1 DF, CYCLIC COMBINATION WITH GEMCITABINE AND CARBOPLATIN
     Route: 065
     Dates: start: 2009
  49. TRASTUZUMAB. [Suspect]
     Active Substance: TRASTUZUMAB
     Dosage: COMBINATION WITH CAPECITABINE
     Route: 065
     Dates: start: 2009

REACTIONS (8)
  - Metastases to lung [Unknown]
  - Metastases to skin [Unknown]
  - Metastases to lymph nodes [Unknown]
  - Hormone receptor positive breast cancer [Unknown]
  - Recurrent cancer [Unknown]
  - Metastases to bone [Unknown]
  - Malignant neoplasm progression [Unknown]
  - Skin mass [Unknown]

NARRATIVE: CASE EVENT DATE: 2009
